FAERS Safety Report 8810251 (Version 1)
Quarter: 2012Q4

REPORT INFORMATION
  Report Type: 
  Country: ET (occurrence: ET)
  Receive Date: 20120926
  Receipt Date: 20120926
  Transmission Date: 20130627
  Serious: Yes (Death)
  Sender: FDA-Public Use
  Company Number: PHHY2008ET044034

PATIENT
  Sex: Male

DRUGS (1)
  1. GLIVEC [Suspect]
     Dates: start: 20070413

REACTIONS (3)
  - Cardiac failure [Fatal]
  - Neoplasm progression [Fatal]
  - Malignant neoplasm progression [Fatal]
